FAERS Safety Report 8771583 (Version 1)
Quarter: 2012Q4

REPORT INFORMATION
  Report Type: 
  Country: US (occurrence: US)
  Receive Date: 20120906
  Receipt Date: 20120906
  Transmission Date: 20130627
  Serious: No
  Sender: FDA-Public Use
  Company Number: US-PFIZER INC-2012215236

PATIENT
  Age: 52 Year
  Sex: Female
  Weight: 136 kg

DRUGS (4)
  1. DETROL LA [Suspect]
     Indication: URINARY INCONTINENCE
     Dosage: UNK
     Dates: start: 200906, end: 201109
  2. TRIBENZOR [Concomitant]
     Indication: HYPERTENSION
     Dosage: UNK
  3. RANITIDINE [Concomitant]
     Indication: GASTROOESOPHAGEAL REFLUX DISEASE
     Dosage: UNK
  4. TRAMADOL [Concomitant]
     Indication: BACK DISORDER
     Dosage: UNK

REACTIONS (1)
  - Vitamin D deficiency [Unknown]
